FAERS Safety Report 7313756-5 (Version None)
Quarter: 2011Q1

REPORT INFORMATION
  Report Type: 
  Country: None (occurrence: None)
  Receive Date: 20110216
  Receipt Date: 20110216
  Transmission Date: 20110831
  Serious: Yes (Other)
  Sender: FDA-Public Use
  Company Number: None

PATIENT
  Age: 70 Year
  Sex: Female
  Weight: 94.8018 kg

DRUGS (2)
  1. PREVACID [Suspect]
     Indication: BARRETT'S OESOPHAGUS
     Dosage: 30MG ONCE DAILY PO
     Route: 048
     Dates: start: 20040723, end: 20040813
  2. PRILOSEC [Suspect]
     Indication: GASTROOESOPHAGEAL REFLUX DISEASE
     Dosage: 40MG TWICE DAILY PO
     Route: 048
     Dates: start: 20110110, end: 20110215

REACTIONS (2)
  - PRODUCT SUBSTITUTION ISSUE [None]
  - GASTROOESOPHAGEAL REFLUX DISEASE [None]
